FAERS Safety Report 19845512 (Version 1)
Quarter: 2021Q3

REPORT INFORMATION
  Report Type: Spontaneous
  Country: JP (occurrence: JP)
  Receive Date: 20210917
  Receipt Date: 20210917
  Transmission Date: 20211014
  Serious: Yes (Other)
  Sender: FDA-Public Use
  Company Number: NVSJ2021JP013516

PATIENT
  Age: 3 Month
  Sex: Female

DRUGS (6)
  1. VINCRISTINE [Concomitant]
     Active Substance: VINCRISTINE
     Indication: ANGIOSARCOMA
     Dosage: UNK
     Route: 065
  2. PREDNISOLONE. [Concomitant]
     Active Substance: PREDNISOLONE
     Indication: ANGIOSARCOMA
     Dosage: UNK
     Route: 065
  3. EVEROLIMUS. [Suspect]
     Active Substance: EVEROLIMUS
     Indication: ANGIOSARCOMA
     Dosage: UNK
     Route: 048
  4. EVEROLIMUS. [Suspect]
     Active Substance: EVEROLIMUS
     Indication: HAEMANGIOMA-THROMBOCYTOPENIA SYNDROME
  5. PREDNISOLONE. [Concomitant]
     Active Substance: PREDNISOLONE
     Indication: HAEMANGIOMA-THROMBOCYTOPENIA SYNDROME
  6. VINCRISTINE [Concomitant]
     Active Substance: VINCRISTINE
     Indication: HAEMANGIOMA-THROMBOCYTOPENIA SYNDROME

REACTIONS (2)
  - Pneumocystis jirovecii pneumonia [Recovered/Resolved]
  - Product use in unapproved indication [Unknown]
